FAERS Safety Report 9237016 (Version 1)
Quarter: 2013Q2

REPORT INFORMATION
  Report Type: Spontaneous
  Country: FR (occurrence: FR)
  Receive Date: 20130417
  Receipt Date: 20130417
  Transmission Date: 20140414
  Serious: Yes (Other)
  Sender: FDA-Public Use
  Company Number: PHHY2013FR035722

PATIENT
  Age: 1 Month
  Sex: Male

DRUGS (5)
  1. SANDOSTATINE [Suspect]
     Indication: HYPERINSULINISM
     Dosage: 10 UG, QD
     Route: 058
     Dates: start: 20130406, end: 20130406
  2. SANDOSTATINE [Suspect]
     Dosage: 6 UG, QD
     Route: 058
     Dates: start: 20130407, end: 20130408
  3. SANDOSTATINE [Suspect]
     Dosage: 100 UG/ML, CONTINUOUS INFUSION
  4. SANDOSTATINE [Suspect]
     Dosage: 100 UG/ML, PUMP INFUSION
  5. DIAZOXIDE [Concomitant]
     Indication: HYPERINSULINISM

REACTIONS (3)
  - Glycosuria [Recovered/Resolved]
  - Hyperglycaemia [Recovered/Resolved]
  - Hypoglycaemia [Recovered/Resolved]
